FAERS Safety Report 18539556 (Version 1)
Quarter: 2020Q4

REPORT INFORMATION
  Report Type: Spontaneous
  Country: US (occurrence: US)
  Receive Date: 20201124
  Receipt Date: 20201124
  Transmission Date: 20210114
  Serious: No
  Sender: FDA-Public Use
  Company Number: US-JNJFOC-20201114072

PATIENT
  Age: 48 Year
  Sex: Female
  Weight: 95.34 kg

DRUGS (1)
  1. MENS ROGAINE EXTRA STRENGTH [Suspect]
     Active Substance: MINOXIDIL
     Indication: ALOPECIA
     Dosage: DOSE: 1 PUMP?LAST ADMINISTERED DATE: 03-NOV-2020.
     Route: 061
     Dates: start: 20201103

REACTIONS (3)
  - Product use issue [Unknown]
  - Off label use [Unknown]
  - Application site pruritus [Recovered/Resolved]

NARRATIVE: CASE EVENT DATE: 20201103
